FAERS Safety Report 7394116-8 (Version None)
Quarter: 2011Q2

REPORT INFORMATION
  Report Type: 
  Country: None (occurrence: None)
  Receive Date: 20110405
  Receipt Date: 20110330
  Transmission Date: 20111010
  Serious: Yes (Other)
  Sender: FDA-Public Use
  Company Number: US-JNJFOC-20100806892

PATIENT
  Sex: Male

DRUGS (6)
  1. LEVAQUIN [Suspect]
     Indication: DYSURIA
     Route: 048
  2. LEVAQUIN [Suspect]
     Indication: URINARY TRACT INFECTION
     Route: 048
  3. LEVAQUIN [Suspect]
     Indication: POLLAKIURIA
     Route: 048
  4. LEVAQUIN [Suspect]
     Route: 065
  5. CIPROFLOXACIN [Suspect]
     Indication: PROSTATITIS
     Route: 048
  6. CIPROFLOXACIN [Suspect]
     Indication: URINARY TRACT INFECTION
     Route: 048

REACTIONS (3)
  - DRUG INEFFECTIVE [None]
  - ROTATOR CUFF SYNDROME [None]
  - TENDON RUPTURE [None]
